FAERS Safety Report 5257261-9 (Version None)
Quarter: 2007Q1

REPORT INFORMATION
  Report Type: 
  Country: None (occurrence: None)
  Receive Date: 20070302
  Receipt Date: 20070220
  Transmission Date: 20070707
  Serious: Yes (Hospitalization)
  Sender: FDA-Public Use
  Company Number: 2007BI000470

PATIENT
  Age: 28 Year
  Sex: Female
  Weight: 127 kg

DRUGS (8)
  1. NATALIZUMAB [Suspect]
     Indication: MULTIPLE SCLEROSIS
     Dosage: 300 MG; QM; IV
     Route: 042
     Dates: start: 20060929
  2. WELLBUTRIN [Concomitant]
  3. LEXAPRO [Concomitant]
  4. IRON [Concomitant]
  5. CATAPRES [Concomitant]
  6. BACLOFEN [Concomitant]
  7. MACRODANTIN [Concomitant]
  8. BACTRIM [Concomitant]

REACTIONS (5)
  - BACTERIAL INFECTION [None]
  - CATHETER RELATED INFECTION [None]
  - DECUBITUS ULCER [None]
  - DEEP VEIN THROMBOSIS [None]
  - URINARY TRACT INFECTION [None]
